FAERS Safety Report 9150522 (Version 1)
Quarter: 2013Q1

REPORT INFORMATION
  Report Type: Spontaneous
  Country: US (occurrence: US)
  Receive Date: 20130308
  Receipt Date: 20130308
  Transmission Date: 20140127
  Serious: No
  Sender: FDA-Public Use
  Company Number: US-ENDO PHARMACEUTICALS INC.-OPCR20121147

PATIENT
  Sex: Male

DRUGS (9)
  1. OPANA ER 30MG [Suspect]
     Indication: PAIN
     Route: 048
     Dates: start: 2012
  2. OPANA ER 30MG [Suspect]
     Indication: INTERVERTEBRAL DISC PROTRUSION
  3. OPANA ER 30MG [Suspect]
     Indication: NERVE INJURY
  4. OPANA ER 30MG [Suspect]
     Indication: BACK DISORDER
  5. OPANA ER [Concomitant]
     Indication: PAIN
     Dosage: UNKNOWN
     Route: 048
     Dates: end: 2012
  6. OPANA ER [Concomitant]
     Indication: INTERVERTEBRAL DISC PROTRUSION
  7. OPANA ER [Concomitant]
     Indication: NERVE INJURY
  8. OPANA ER [Concomitant]
     Indication: BACK DISORDER
  9. OXYMORPHONE HYDROCHLORIDE [Concomitant]
     Indication: PAIN
     Route: 048

REACTIONS (4)
  - Musculoskeletal pain [Not Recovered/Not Resolved]
  - Abdominal discomfort [Not Recovered/Not Resolved]
  - Headache [Not Recovered/Not Resolved]
  - Drug effect delayed [Not Recovered/Not Resolved]
